FAERS Safety Report 7381408-1 (Version None)
Quarter: 2011Q1

REPORT INFORMATION
  Report Type: 
  Country: None (occurrence: None)
  Receive Date: 20110321
  Receipt Date: 20110310
  Transmission Date: 20110831
  Serious: Yes (Hospitalization)
  Sender: FDA-Public Use
  Company Number: 025861

PATIENT
  Sex: Female
  Weight: 65 kg

DRUGS (6)
  1. PREDNISOLONE [Concomitant]
  2. VIMPAT [Suspect]
     Indication: EPILEPSY
     Dates: end: 20110222
  3. ACETAMINOPHEN [Concomitant]
  4. IBUPROFEN [Concomitant]
  5. PANTOZOL [Concomitant]
  6. CARBAMAZEPINE [Concomitant]

REACTIONS (4)
  - CONCUSSION [None]
  - SYNCOPE [None]
  - RADIUS FRACTURE [None]
  - GRAND MAL CONVULSION [None]
